FAERS Safety Report 8358385-X (Version None)
Quarter: 2012Q2

REPORT INFORMATION
  Report Type: 
  Country: None (occurrence: None)
  Receive Date: 20120514
  Receipt Date: 20110628
  Transmission Date: 20120825
  Serious: Yes (Other)
  Sender: FDA-Public Use
  Company Number: US-ALEXION-A201100547

PATIENT
  Sex: Female

DRUGS (8)
  1. LORAZEPAM [Concomitant]
  2. SOLIRIS [Suspect]
     Indication: PAROXYSMAL NOCTURNAL HAEMOGLOBINURIA
     Dosage: UNK
     Route: 042
  3. CLOPIDOGREL [Concomitant]
  4. HYDROCHLOROTHIAZIDE [Concomitant]
  5. METFORMIN HCL [Concomitant]
  6. INSULIN [Concomitant]
  7. CARVEDILOL [Concomitant]
  8. AMLODIPINE BESYLATE [Concomitant]

REACTIONS (4)
  - ANAEMIA [None]
  - MYOCARDIAL INFARCTION [None]
  - BRONCHITIS [None]
  - DIZZINESS POSTURAL [None]
